FAERS Safety Report 4930836-X (Version None)
Quarter: 2006Q1

REPORT INFORMATION
  Report Type: 
  Country: None (occurrence: None)
  Receive Date: 20060227
  Receipt Date: 20060215
  Transmission Date: 20060701
  Serious: Yes (Hospitalization, Other)
  Sender: FDA-Public Use
  Company Number: 200610225BYL

PATIENT
  Age: 76 Year
  Sex: Male

DRUGS (2)
  1. ADALAT [Suspect]
     Dosage: ORAL
     Route: 048
  2. TANATRIL (IMIDAPRIL HYDROCHLORIDE) [Suspect]

REACTIONS (2)
  - DYSPNOEA [None]
  - EPIGLOTTIC OEDEMA [None]
